FAERS Safety Report 8390159-6 (Version None)
Quarter: 2012Q2

REPORT INFORMATION
  Report Type: 
  Country: None (occurrence: None)
  Receive Date: 20120529
  Receipt Date: 20120525
  Transmission Date: 20120825
  Serious: Yes (Hospitalization)
  Sender: FDA-Public Use
  Company Number: US-PFIZER INC-2012127315

PATIENT
  Sex: Male
  Weight: 67.574 kg

DRUGS (7)
  1. TYLENOL [Concomitant]
     Indication: PAIN
     Dosage: 325 MG, AS NEEDED
  2. CARBIDOPA [Concomitant]
     Indication: PARKINSON'S DISEASE
     Dosage: 25 MG, 4X/DAY
  3. LEVODOPA [Concomitant]
     Indication: PARKINSON'S DISEASE
     Dosage: 100 MG, 4X/DAY
  4. CALCIUM [Concomitant]
     Dosage: UNK
  5. FLECTOR [Suspect]
     Indication: BACK PAIN
     Dosage: UNK
     Route: 062
     Dates: start: 20120215, end: 20120201
  6. IBUPROFEN [Concomitant]
     Indication: PAIN
     Dosage: 325 MG, AS NEEDED
  7. HYDROCODONE BITARTRATE + ACETAMINOPHEN [Concomitant]
     Indication: PAIN
     Dosage: 5/500, MG, EVERY FOUR HOURS

REACTIONS (4)
  - PHARYNGEAL OEDEMA [None]
  - OEDEMA MOUTH [None]
  - SWOLLEN TONGUE [None]
  - SPINAL DISORDER [None]
